FAERS Safety Report 10595357 (Version 1)
Quarter: 2014Q4

REPORT INFORMATION
  Report Type: Spontaneous
  Country: US (occurrence: None)
  Receive Date: 20141119
  Receipt Date: 20141119
  Transmission Date: 20150529
  Serious: Yes (Hospitalization)
  Sender: FDA-Public Use
  Company Number: None

PATIENT
  Age: 20 Year
  Sex: Female
  Weight: 90.7 kg

DRUGS (1)
  1. NUVARING [Suspect]
     Active Substance: ETHINYL ESTRADIOL\ETONOGESTREL
     Indication: CONTRACEPTION

REACTIONS (8)
  - Intracranial venous sinus thrombosis [None]
  - Vision blurred [None]
  - Drug ineffective [None]
  - Migraine [None]
  - Photophobia [None]
  - Phonophobia [None]
  - Weight increased [None]
  - Aura [None]

NARRATIVE: CASE EVENT DATE: 20140721
